FAERS Safety Report 22587466 (Version 1)
Quarter: 2023Q2

REPORT INFORMATION
  Report Type: Report from Study
  Country: US (occurrence: US)
  Receive Date: 20230612
  Receipt Date: 20230612
  Transmission Date: 20230721
  Serious: No
  Sender: FDA-Public Use
  Company Number: US-002147023-NVSC2023US128930

PATIENT
  Sex: Female

DRUGS (4)
  1. KETOCONAZOLE [Suspect]
     Active Substance: KETOCONAZOLE
     Indication: Seborrhoeic dermatitis
     Dosage: UNK
     Route: 065
  2. CLOBETASOL PROPIONATE [Suspect]
     Active Substance: CLOBETASOL PROPIONATE
     Indication: Seborrhoeic dermatitis
     Dosage: UNK
     Route: 065
  3. LIDOCAINE [Suspect]
     Active Substance: LIDOCAINE
     Indication: Seborrhoeic dermatitis
     Dosage: UNK
     Route: 065
  4. ALCOHOL [Suspect]
     Active Substance: ALCOHOL
     Indication: Seborrhoeic dermatitis
     Dosage: UNK
     Route: 065

REACTIONS (6)
  - Neoplasm skin [Unknown]
  - Illness [Unknown]
  - Papule [Unknown]
  - Rash [Unknown]
  - Psoriasis [Unknown]
  - Treatment failure [Unknown]
